FAERS Safety Report 5219254-7 (Version None)
Quarter: 2007Q1

REPORT INFORMATION
  Report Type: 
  Country: None (occurrence: None)
  Receive Date: 20070125
  Receipt Date: 20070119
  Transmission Date: 20070707
  Serious: Yes (Other)
  Sender: FDA-Public Use
  Company Number: 2007UW01155

PATIENT
  Age: 47 Year
  Sex: Female
  Weight: 56.7 kg

DRUGS (2)
  1. SEROQUEL [Suspect]
     Indication: BIPOLAR I DISORDER
     Route: 048
  2. LITHIUM CARBONATE [Concomitant]

REACTIONS (3)
  - ABASIA [None]
  - APHASIA [None]
  - BLOOD PRESSURE DECREASED [None]
